FAERS Safety Report 4957152-4 (Version None)
Quarter: 2006Q1

REPORT INFORMATION
  Report Type: 
  Country: None (occurrence: None)
  Receive Date: 20060329
  Receipt Date: 20060327
  Transmission Date: 20060701
  Serious: Yes (Death, Other)
  Sender: FDA-Public Use
  Company Number: US-MERCK-0603USA04211

PATIENT
  Sex: Female

DRUGS (2)
  1. VIOXX [Suspect]
     Route: 048
     Dates: start: 20010113, end: 20030506
  2. BEXTRA [Suspect]
     Route: 048
     Dates: start: 20031112, end: 20040227

REACTIONS (2)
  - INJURY [None]
  - MYOCARDIAL INFARCTION [None]
